FAERS Safety Report 8600099 (Version 9)
Quarter: 2013Q1

REPORT INFORMATION
  Report Type: Spontaneous
  Country: US (occurrence: US)
  Receive Date: 20120605
  Receipt Date: 20130213
  Transmission Date: 20140127
  Serious: Yes (Other)
  Sender: FDA-Public Use
  Company Number: US-PFIZER INC-2012132996

PATIENT
  Sex: Female

DRUGS (3)
  1. CORTEF [Suspect]
     Indication: ADRENAL INSUFFICIENCY
     Dosage: 10 MG, UNK
     Route: 048
  2. CORTEF [Suspect]
     Indication: EPINEPHRINE DECREASED
     Dosage: 10 MG, 3X/DAY
     Route: 048
  3. FLORINEF [Suspect]
     Indication: EPINEPHRINE DECREASED
     Dosage: 0.1 MG, DAILY

REACTIONS (17)
  - Adrenal insufficiency [Unknown]
  - Renal failure [Unknown]
  - Circumstance or information capable of leading to medication error [Unknown]
  - Intentional overdose [Unknown]
  - Poor quality drug administered [Unknown]
  - Suspected counterfeit product [Unknown]
  - Product quality issue [Unknown]
  - Adrenocortical insufficiency acute [Unknown]
  - Malaise [Unknown]
  - Blood corticotrophin increased [Unknown]
  - Heart rate increased [Unknown]
  - Nausea [Unknown]
  - Vomiting [Unknown]
  - Lethargy [Unknown]
  - Feeling abnormal [Unknown]
  - Drug ineffective [Unknown]
  - Product contamination physical [Unknown]
